FAERS Safety Report 22611733 (Version 2)
Quarter: 2024Q1

REPORT INFORMATION
  Report Type: Report from Study
  Country: IT (occurrence: IT)
  Receive Date: 20230616
  Receipt Date: 20240301
  Transmission Date: 20240409
  Serious: Yes (Hospitalization, Other)
  Sender: FDA-Public Use
  Company Number: None

PATIENT
  Age: 70 Year
  Sex: Female
  Weight: 57 kg

DRUGS (9)
  1. FLUOROURACIL [Suspect]
     Active Substance: FLUOROURACIL
     Indication: Colorectal adenocarcinoma
     Dosage: DOSAGE TEXT: ON 03/16/2023 THE PATIENT WAS ADMINISTERED 206.55 MG OF IRINOTECAN (DOSAGE ACCORDING...
     Route: 042
     Dates: start: 20230316, end: 20230317
  2. DEXAMETHASONE [Concomitant]
     Active Substance: DEXAMETHASONE
     Indication: Product used for unknown indication
     Dosage: DOSAGE TEXT: THE PATIENT TAKES DEXAMETHASONE 4 MG, 1 TABLET A DAY FOR THE 3 DAYS FOLLOWING THE IN...
     Dates: start: 20230317, end: 20230322
  3. SIMVASTATIN [Concomitant]
     Active Substance: SIMVASTATIN
     Indication: Product used for unknown indication
     Dosage: THE PATIENT TAKES 20 MG OF SIMVASTATIN, ONCE A DAY.
  4. LANSOPRAZOLE [Concomitant]
     Active Substance: LANSOPRAZOLE
     Indication: Product used for unknown indication
     Dosage: THE PATIENT TAKES LANSOPRAZOLE 30 MG, ONCE A DAY.
     Route: 048
  5. ALPRAZOLAM [Concomitant]
     Active Substance: ALPRAZOLAM
     Indication: Product used for unknown indication
     Dosage: THE PATIENT TAKES 0.25 MG OF ALPRAZOLAM, 1 TIME PER DAY.
  6. LEVOLEUCOVORIN CALCIUM [Suspect]
     Active Substance: LEVOLEUCOVORIN CALCIUM
     Indication: Colorectal adenocarcinoma
     Dosage: DOSAGE TEXT: ON 03/16/2023 THE PATIENT WAS ADMINISTERED 206.55 MG OF IRINOTECAN (DOSAGE ACCORDING...
     Route: 042
     Dates: start: 20230316, end: 20230316
  7. IRINOTECAN HYDROCHLORIDE [Suspect]
     Active Substance: IRINOTECAN HYDROCHLORIDE
     Indication: Colorectal adenocarcinoma
     Dosage: DOSAGE TEXT: ON 03/16/2023 THE PATIENT WAS ADMINISTERED 206.55 MG OF IRINOTECAN (DOSAGE ACCORDING...
     Route: 042
     Dates: start: 20230316, end: 20230316
  8. OXYCODONE [Concomitant]
     Active Substance: OXYCODONE\OXYCODONE HYDROCHLORIDE
     Indication: Product used for unknown indication
     Dosage: THE PATIENT TAKES OXYCODONE 20 MG, 1 TABLET 3 TIMES A DAY.
  9. NALDEMEDINE [Concomitant]
     Active Substance: NALDEMEDINE
     Indication: Product used for unknown indication
     Dosage: THE PATIENT TAKES 0.2 MG OF NALDEMEDINE, 1 TIME PER DAY (CONCOMITANT WITH OXYCODONE) , NALDEMEDINA

REACTIONS (4)
  - Anaemia [Recovered/Resolved]
  - Leukocytosis [Recovered/Resolved]
  - Febrile neutropenia [Recovered/Resolved]
  - Erysipelas [Recovered/Resolved]

NARRATIVE: CASE EVENT DATE: 20230325
